FAERS Safety Report 12454328 (Version 1)
Quarter: 2016Q2

REPORT INFORMATION
  Report Type: Spontaneous
  Country: AR (occurrence: AR)
  Receive Date: 20160610
  Receipt Date: 20160610
  Transmission Date: 20160815
  Serious: Yes (Hospitalization, Other)
  Sender: FDA-Public Use
  Company Number: AR-AMGEN-ARGSP2016072940

PATIENT
  Age: 57 Year
  Sex: Female

DRUGS (1)
  1. ENBREL [Suspect]
     Active Substance: ETANERCEPT
     Indication: RHEUMATOID ARTHRITIS
     Dosage: 50 MG, WEEKLY
     Route: 065
     Dates: start: 20131107

REACTIONS (4)
  - Condition aggravated [Recovered/Resolved]
  - Cerebrovascular accident [Recovered/Resolved]
  - Mobility decreased [Unknown]
  - Affective disorder [Unknown]

NARRATIVE: CASE EVENT DATE: 201605
